FAERS Safety Report 23628876 (Version 1)
Quarter: 2024Q1

REPORT INFORMATION
  Report Type: Spontaneous
  Country: US (occurrence: US)
  Receive Date: 20240313
  Receipt Date: 20240313
  Transmission Date: 20240409
  Serious: Yes (Other)
  Sender: FDA-Public Use
  Company Number: US-PFIZER INC-202400061636

PATIENT
  Age: 2 Year
  Sex: Male

DRUGS (2)
  1. BENEFIX [Suspect]
     Active Substance: COAGULATION FACTOR IX RECOMBINANT HUMAN\ISOPROPYL ALCOHOL
     Indication: Haemorrhage
     Dosage: 500 UNIT (+/- 10%) DAILY FOR MINOR BLEEDS
     Route: 042
  2. BENEFIX [Suspect]
     Active Substance: COAGULATION FACTOR IX RECOMBINANT HUMAN\ISOPROPYL ALCOHOL
     Dosage: 1000 UNIT (+/- 10%) DAILY FOR MAJOR BLEEDS
     Route: 042

REACTIONS (4)
  - Injury [Unknown]
  - Epistaxis [Recovering/Resolving]
  - Contusion [Unknown]
  - Product prescribing issue [Unknown]
